FAERS Safety Report 5965275-6 (Version None)
Quarter: 2008Q4

REPORT INFORMATION
  Report Type: 
  Country: None (occurrence: None)
  Receive Date: 20081125
  Receipt Date: 20081007
  Transmission Date: 20090506
  Serious: No
  Sender: FDA-Public Use
  Company Number: US-AMGEN-KDL311110

PATIENT
  Sex: Female
  Weight: 61.3 kg

DRUGS (6)
  1. ENBREL [Suspect]
     Indication: PSORIASIS
     Route: 058
     Dates: start: 20080811
  2. CLOBETASOL PROPIONATE [Concomitant]
  3. HYDROCHLOROTHIAZIDE [Concomitant]
  4. KLOR-CON [Concomitant]
  5. LISINOPRIL [Concomitant]
  6. VERAPAMIL HYDROCHLORIDE [Concomitant]

REACTIONS (1)
  - PSORIASIS [None]
